FAERS Safety Report 7300944-7 (Version None)
Quarter: 2011Q1

REPORT INFORMATION
  Report Type: 
  Country: None (occurrence: None)
  Receive Date: 20110107
  Receipt Date: 20100723
  Transmission Date: 20110831
  Serious: Yes (Other)
  Sender: FDA-Public Use
  Company Number: 2005075909

PATIENT
  Age: 51 Year
  Sex: Male
  Weight: 72.6 kg

DRUGS (3)
  1. ROGAINE [Suspect]
     Indication: ALOPECIA
     Dosage: TOPICAL
     Route: 061
     Dates: start: 19950101
  2. ATENOLOL [Suspect]
     Indication: HEART RATE IRREGULAR
     Dosage: 0.25 MG
     Dates: start: 20050201
  3. ROGAINE [Suspect]
     Indication: ALOPECIA
     Dosage: 0.66-0.75 ML BID, TOPICAL
     Route: 061
     Dates: start: 19990101

REACTIONS (3)
  - ARRHYTHMIA [None]
  - ALOPECIA [None]
  - DRUG INEFFECTIVE [None]
